FAERS Safety Report 4314514-6 (Version None)
Quarter: 2004Q1

REPORT INFORMATION
  Report Type: 
  Country: None (occurrence: None)
  Receive Date: 20040308
  Receipt Date: 20040225
  Transmission Date: 20041129
  Serious: Yes (Hospitalization)
  Sender: FDA-Public Use
  Company Number: 03P-163-0245427-00

PATIENT
  Age: 41 Year
  Sex: Female

DRUGS (7)
  1. KALETRA [Suspect]
     Indication: HIV INFECTION
  2. TENOFOVIR [Suspect]
     Indication: HIV INFECTION
     Dosage: 300 MG, 1 IN 1 D, PER ORAL
     Route: 048
     Dates: start: 20030709, end: 20031117
  3. DELAVIRDINE MESYLATE [Concomitant]
  4. LAMIVUDINE [Concomitant]
  5. DAPSONE [Concomitant]
  6. LEVOTHYROXINE SODIUM [Concomitant]
  7. CO-DOVAN [Concomitant]

REACTIONS (6)
  - ANAEMIA [None]
  - ASTHENIA [None]
  - FATIGUE [None]
  - FEELING ABNORMAL [None]
  - MALAISE [None]
  - RENAL FAILURE [None]
